FAERS Safety Report 6666860-9 (Version None)
Quarter: 2010Q2

REPORT INFORMATION
  Report Type: 
  Country: None (occurrence: None)
  Receive Date: 20100401
  Receipt Date: 20100401
  Transmission Date: 20101027
  Serious: Yes (Life-Threatening, Hospitalization)
  Sender: FDA-Public Use
  Company Number: None

PATIENT
  Age: 48 Year
  Sex: Male
  Weight: 92.1 kg

DRUGS (1)
  1. LISINOPRIL [Suspect]
     Indication: HYPERTENSION
     Dosage: ONE TAB EVERY DAY PO
     Route: 048
     Dates: start: 20050608, end: 20100317

REACTIONS (3)
  - ANGIOEDEMA [None]
  - APHASIA [None]
  - VISION BLURRED [None]
